FAERS Safety Report 4594654-7 (Version None)
Quarter: 2005Q1

REPORT INFORMATION
  Report Type: 
  Country: None (occurrence: None)
  Receive Date: 20050301
  Receipt Date: 20041124
  Transmission Date: 20050727
  Serious: Yes (Other)
  Sender: FDA-Public Use
  Company Number: US-BRISTOL-MYERS SQUIBB COMPANY-12775300

PATIENT
  Age: 35 Year
  Sex: Male
  Weight: 72 kg

DRUGS (8)
  1. ERBITUX [Suspect]
     Indication: COLON CANCER
     Route: 042
     Dates: start: 20041109, end: 20041109
  2. ATROPINE [Concomitant]
     Indication: PREMEDICATION
     Route: 042
     Dates: start: 20041109, end: 20041109
  3. BENADRYL [Concomitant]
     Indication: PREMEDICATION
     Route: 042
     Dates: start: 20041109, end: 20041109
  4. DECADRON [Concomitant]
     Indication: PREMEDICATION
     Route: 042
     Dates: start: 20041109, end: 20041109
  5. KYTRIL [Concomitant]
     Indication: PREMEDICATION
     Route: 042
     Dates: start: 20041109, end: 20041109
  6. IRINOTECAN HCL [Concomitant]
     Route: 042
     Dates: start: 20041109, end: 20041109
  7. LARIAM [Concomitant]
     Indication: MALARIA
     Dates: start: 20041001, end: 20041001
  8. PRIMAQUINE [Concomitant]
     Indication: MALARIA
     Dates: end: 20041108

REACTIONS (1)
  - ACNE [None]
